FAERS Safety Report 8002468-0 (Version None)
Quarter: 2011Q4

REPORT INFORMATION
  Report Type: 
  Country: None (occurrence: None)
  Receive Date: 20111222
  Receipt Date: 20111213
  Transmission Date: 20120403
  Serious: Yes (Other)
  Sender: FDA-Public Use
  Company Number: US-JNJFOC-20111012527

PATIENT
  Sex: Male
  Weight: 120.9 kg

DRUGS (11)
  1. LAMICTAL [Concomitant]
     Indication: DRUG THERAPY
     Route: 065
  2. INVEGA SUSTENNA [Suspect]
     Indication: SCHIZOPHRENIA
     Route: 030
     Dates: start: 20111019
  3. COGENTIN [Concomitant]
     Indication: PARKINSONISM
     Route: 065
  4. INVEGA SUSTENNA [Suspect]
     Indication: MAJOR DEPRESSION
     Route: 030
     Dates: start: 20111019
  5. KLONOPIN [Concomitant]
     Indication: ANXIETY
     Route: 065
  6. CELEXA [Concomitant]
     Indication: DEPRESSION
     Dosage: IN AM
     Route: 065
  7. GEODON [Concomitant]
     Indication: PSYCHOTIC DISORDER
     Route: 065
  8. INVEGA SUSTENNA [Suspect]
     Route: 030
     Dates: start: 20111012, end: 20111001
  9. PRAZOSIN HCL [Concomitant]
     Indication: NIGHTMARE
     Route: 065
  10. INVEGA SUSTENNA [Suspect]
     Route: 030
     Dates: start: 20111012, end: 20111001
  11. TRILEPTAL [Concomitant]
     Indication: DRUG THERAPY
     Route: 065

REACTIONS (1)
  - HYPERSENSITIVITY [None]
